FAERS Safety Report 10457728 (Version 1)
Quarter: 2014Q3

REPORT INFORMATION
  Report Type: Spontaneous
  Country: GB (occurrence: GB)
  Receive Date: 20140916
  Receipt Date: 20140916
  Transmission Date: 20150326
  Serious: Yes (Life-Threatening, Other)
  Sender: FDA-Public Use
  Company Number: GB-ROXANE LABORATORIES, INC.-2014-RO-01378RO

PATIENT
  Age: 80 Year
  Sex: Male

DRUGS (2)
  1. CYCLOPHOSPHAMIDE TABLETS USP [Suspect]
     Active Substance: CYCLOPHOSPHAMIDE
     Indication: CHRONIC LYMPHOCYTIC LEUKAEMIA
     Route: 065
     Dates: start: 2009, end: 2009
  2. FLUDARABINE [Suspect]
     Active Substance: FLUDARABINE PHOSPHATE
     Indication: CHRONIC LYMPHOCYTIC LEUKAEMIA
     Route: 065
     Dates: start: 2009, end: 2009

REACTIONS (2)
  - Cytomegalovirus viraemia [Recovered/Resolved]
  - Histiocytosis haematophagic [Unknown]
